APPROVED DRUG PRODUCT: STRATTERA
Active Ingredient: ATOMOXETINE HYDROCHLORIDE
Strength: EQ 5MG BASE
Dosage Form/Route: CAPSULE;ORAL
Application: N021411 | Product #001
Applicant: ELI LILLY AND CO
Approved: Nov 26, 2002 | RLD: No | RS: No | Type: DISCN